FAERS Safety Report 13643444 (Version 2)
Quarter: 2017Q2

REPORT INFORMATION
  Report Type: Spontaneous
  Country: JP (occurrence: JP)
  Receive Date: 20170612
  Receipt Date: 20170629
  Transmission Date: 20170830
  Serious: Yes (Hospitalization, Other)
  Sender: FDA-Public Use
  Company Number: JP-PFIZER INC-2017247168

PATIENT
  Age: 74 Year
  Sex: Male

DRUGS (1)
  1. ZITHROMAC 250MG [Suspect]
     Active Substance: AZITHROMYCIN DIHYDRATE
     Indication: ALVEOLAR OSTEITIS
     Dosage: 250 MG, UNK
     Route: 048
     Dates: start: 20170531

REACTIONS (2)
  - Hyperpyrexia [Recovered/Resolved]
  - Feeling cold [Recovered/Resolved]

NARRATIVE: CASE EVENT DATE: 20170601
